FAERS Safety Report 10958723 (Version 4)
Quarter: 2015Q2

REPORT INFORMATION
  Report Type: Spontaneous
  Country: US (occurrence: US)
  Receive Date: 20150326
  Receipt Date: 20150624
  Transmission Date: 20150821
  Serious: Yes (Hospitalization, Other)
  Sender: FDA-Public Use
  Company Number: US-BAYER-2015-060517

PATIENT
  Age: 21 Year
  Sex: Female

DRUGS (1)
  1. MIRENA [Suspect]
     Active Substance: LEVONORGESTREL
     Indication: CONTRACEPTION
     Dosage: 20 MCG/24HR, CONT
     Route: 015
     Dates: start: 20080307, end: 20141008

REACTIONS (12)
  - Pelvic pain [None]
  - Injury [None]
  - Pregnancy with contraceptive device [None]
  - Abortion spontaneous [None]
  - Device issue [None]
  - Uterine haemorrhage [None]
  - Infertility female [Not Recovered/Not Resolved]
  - Uterine adhesions [None]
  - Uterine perforation [None]
  - Drug ineffective [None]
  - Drug diversion [None]
  - Device use error [None]

NARRATIVE: CASE EVENT DATE: 200911
